FAERS Safety Report 20055548 (Version 2)
Quarter: 2021Q4

REPORT INFORMATION
  Report Type: Spontaneous
  Country: BR (occurrence: BR)
  Receive Date: 20211110
  Receipt Date: 20211119
  Transmission Date: 20220303
  Serious: Yes (Hospitalization, Other)
  Sender: FDA-Public Use
  Company Number: None

PATIENT
  Age: 65 Year
  Sex: Male

DRUGS (2)
  1. KEYTRUDA [Suspect]
     Active Substance: PEMBROLIZUMAB
     Dosage: PRE QT: CHLORIDE 0.9% 250ML| CYCLE 02 D 01 PROTOCOL:PEMBROLIZUMABE FREQ: EVERY 21 DAYS| PEMBROLIZUMA
     Route: 041
     Dates: start: 20191011
  2. CHLORIDE ION [Concomitant]
     Active Substance: CHLORIDE ION
     Dosage: PRE QT: 250 ML

REACTIONS (2)
  - Asthenia [Not Recovered/Not Resolved]
  - Bilirubin conjugated increased [Not Recovered/Not Resolved]

NARRATIVE: CASE EVENT DATE: 20191101
